FAERS Safety Report 23889530 (Version 1)
Quarter: 2024Q2

REPORT INFORMATION
  Report Type: Spontaneous
  Country: PT (occurrence: PT)
  Receive Date: 20240523
  Receipt Date: 20240523
  Transmission Date: 20240716
  Serious: Yes (Hospitalization)
  Sender: FDA-Public Use
  Company Number: PT-MYLANLABS-2024M1045752

PATIENT
  Age: 61 Year
  Sex: Female

DRUGS (1)
  1. PREGABALIN [Suspect]
     Active Substance: PREGABALIN
     Indication: Product used for unknown indication
     Dosage: 800 MILLIGRAM, QD
     Route: 048

REACTIONS (4)
  - Withdrawal syndrome [Unknown]
  - Generalised tonic-clonic seizure [Unknown]
  - Drug abuse [Unknown]
  - Intentional overdose [Unknown]
